FAERS Safety Report 16578095 (Version 3)
Quarter: 2019Q3

REPORT INFORMATION
  Report Type: Spontaneous
  Country: US (occurrence: US)
  Receive Date: 20190716
  Receipt Date: 20190815
  Transmission Date: 20191004
  Serious: No
  Sender: FDA-Public Use
  Company Number: US-PFIZER INC-2019301770

PATIENT
  Age: 63 Year
  Sex: Female

DRUGS (1)
  1. GABAPENTIN. [Suspect]
     Active Substance: GABAPENTIN
     Dosage: UNK, 3X/DAY (24 ML IN THE MORNING, 18 ML IN THE AFTERNOON, AND 24ML AT BEDTIME )
     Route: 048

REACTIONS (2)
  - Poor quality product administered [Unknown]
  - Product taste abnormal [Unknown]
